FAERS Safety Report 4886251-0 (Version None)
Quarter: 2006Q1

REPORT INFORMATION
  Report Type: 
  Country: None (occurrence: None)
  Receive Date: 20060120
  Receipt Date: 20050901
  Transmission Date: 20060701
  Serious: Yes (Death, Life-Threatening, Hospitalization, Other)
  Sender: FDA-Public Use
  Company Number: PHHO2005JP13862

PATIENT
  Age: 73 Year
  Sex: Male
  Weight: 58.9 kg

DRUGS (7)
  1. NEORAL [Suspect]
     Indication: RHEUMATOID ARTHRITIS
     Dosage: 175 MG, QD
     Route: 048
     Dates: start: 20020617
  2. NEORAL [Suspect]
     Dosage: 150 MG, QD
     Route: 048
     Dates: start: 20050725
  3. LOXONIN [Concomitant]
     Indication: RHEUMATOID ARTHRITIS
  4. PREDNISOLONE [Concomitant]
     Indication: RHEUMATOID ARTHRITIS
  5. MUCOSTA [Concomitant]
     Indication: RHEUMATOID ARTHRITIS
  6. ASPARA-CA [Concomitant]
     Indication: OSTEOARTHRITIS
  7. BENET [Concomitant]
     Indication: OSTEOPOROSIS

REACTIONS (6)
  - COMA [None]
  - GENERAL PHYSICAL HEALTH DETERIORATION [None]
  - LUNG SQUAMOUS CELL CARCINOMA STAGE UNSPECIFIED [None]
  - LYMPHADENOPATHY [None]
  - NEOPLASM [None]
  - RESPIRATORY RATE DECREASED [None]
